FAERS Safety Report 9741576 (Version 1)
Quarter: 2013Q4

REPORT INFORMATION
  Report Type: Spontaneous
  Country: GB (occurrence: GB)
  Receive Date: 20131210
  Receipt Date: 20131210
  Transmission Date: 20140711
  Serious: Yes (Life-Threatening)
  Sender: FDA-Public Use
  Company Number: GB-ROCHE-1315601

PATIENT
  Age: 12 Year
  Sex: Female
  Weight: 43.04 kg

DRUGS (6)
  1. XOLAIR [Suspect]
     Indication: ASTHMA
     Route: 030
     Dates: start: 20130822, end: 20130925
  2. XOLAIR [Interacting]
     Route: 065
     Dates: start: 20130919, end: 20130925
  3. SLO-PHYLLIN [Interacting]
     Indication: ASTHMA
     Route: 048
     Dates: start: 2012, end: 20130924
  4. SYMBICORT [Concomitant]
     Route: 065
     Dates: start: 2012
  5. UNIPHYLLIN [Concomitant]
     Route: 065
     Dates: end: 20130924
  6. PARACETAMOL [Concomitant]

REACTIONS (2)
  - Toxicity to various agents [Recovering/Resolving]
  - Drug interaction [Unknown]
